FAERS Safety Report 8358787-1 (Version None)
Quarter: 2012Q2

REPORT INFORMATION
  Report Type: 
  Country: None (occurrence: None)
  Receive Date: 20120514
  Receipt Date: 20120502
  Transmission Date: 20120825
  Serious: Yes (Hospitalization, Other)
  Sender: FDA-Public Use
  Company Number: US-ELI_LILLY_AND_COMPANY-US201105004237

PATIENT
  Sex: Female
  Weight: 61.6 kg

DRUGS (8)
  1. FORTEO [Suspect]
     Indication: OSTEOPOROSIS
     Dosage: 20 UG, QD
     Route: 058
     Dates: start: 20090101
  2. CYMBALTA [Concomitant]
  3. VITAMIN D [Concomitant]
     Dosage: UNK
  4. ABILIFY [Concomitant]
  5. TRAZODONE HCL [Concomitant]
  6. SIMVASTATIN [Concomitant]
  7. FORTEO [Suspect]
     Dosage: 20 UG, QD
     Route: 058
     Dates: end: 20120420
  8. MAXZIDE [Concomitant]

REACTIONS (3)
  - BONE DISORDER [None]
  - OSTEOTOMY [None]
  - INJECTION SITE PAIN [None]
